FAERS Safety Report 8089768-3 (Version None)
Quarter: 2012Q1

REPORT INFORMATION
  Report Type: 
  Country: None (occurrence: None)
  Receive Date: 20120128
  Receipt Date: 20110711
  Transmission Date: 20120608
  Serious: No
  Sender: FDA-Public Use
  Company Number: US-ABBOTT-11P-163-0838632-00

PATIENT
  Sex: Female
  Weight: 139.38 kg

DRUGS (3)
  1. CYMBALTA [Concomitant]
     Indication: PRODUCT USED FOR UNKNOWN INDICATION
  2. PREDNISONE TAB [Concomitant]
     Indication: PRODUCT USED FOR UNKNOWN INDICATION
  3. HUMIRA [Suspect]
     Indication: ARTHRITIS
     Route: 058
     Dates: start: 20100101

REACTIONS (5)
  - PAIN [None]
  - GENERALISED ERYTHEMA [None]
  - PRURITUS GENERALISED [None]
  - HYPERSENSITIVITY [None]
  - GENERALISED OEDEMA [None]
